FAERS Safety Report 6936151-7 (Version None)
Quarter: 2010Q3

REPORT INFORMATION
  Report Type: 
  Country: None (occurrence: None)
  Receive Date: 20100823
  Receipt Date: 20100811
  Transmission Date: 20110219
  Serious: Yes (Other)
  Sender: FDA-Public Use
  Company Number: JP-SANOFI-AVENTIS-2010SA047401

PATIENT
  Age: 71 Year
  Sex: Male
  Weight: 45 kg

DRUGS (3)
  1. PLAVIX [Suspect]
     Indication: LACUNAR INFARCTION
     Route: 048
     Dates: start: 20081029
  2. FAMOTIDINE [Concomitant]
     Route: 048
     Dates: start: 20081107
  3. MAGNESIUM OXIDE [Concomitant]
     Route: 048
     Dates: start: 20070419

REACTIONS (1)
  - RENAL IMPAIRMENT [None]
